FAERS Safety Report 8613241-4 (Version None)
Quarter: 2012Q3

REPORT INFORMATION
  Report Type: 
  Country: None (occurrence: None)
  Receive Date: 20120822
  Receipt Date: 20120808
  Transmission Date: 20120928
  Serious: Yes (Other)
  Sender: FDA-Public Use
  Company Number: CHPA2012US018164

PATIENT
  Age: 53 Year
  Sex: Male

DRUGS (1)
  1. EXCEDRIN (MIGRAINE) [Suspect]
     Indication: HEADACHE
     Dosage: 6 DF, IN ONE DAY
     Route: 048
     Dates: start: 19980101, end: 19980101

REACTIONS (6)
  - POST PROCEDURAL COMPLICATION [None]
  - OVERDOSE [None]
  - INTERVERTEBRAL DISC PROTRUSION [None]
  - DRUG INEFFECTIVE [None]
  - NECK PAIN [None]
  - FOREIGN BODY [None]
